FAERS Safety Report 7602814 (Version 2)
Quarter: 2012Q4

REPORT INFORMATION
  Report Type: 
  Country: US (occurrence: US)
  Receive Date: 20100923
  Receipt Date: 20121207
  Transmission Date: 20130627
  Serious: Yes (Hospitalization, Other)
  Sender: FDA-Public Use
  Company Number: US-ELI_LILLY_AND_COMPANY-US201009003964

PATIENT
  Sex: Male

DRUGS (8)
  1. BYETTA [Suspect]
     Indication: DIABETES MELLITUS
     Dosage: UNK
     Route: 058
     Dates: start: 200707
  2. BYETTA [Suspect]
     Dosage: 10 ug, bid
     Route: 058
  3. AMARYL [Concomitant]
     Dosage: 8 mg, qd
  4. LISINOPRIL [Concomitant]
     Dosage: 10 mg, qd
  5. VICOPROFEN [Concomitant]
     Indication: PAIN
  6. RANITIDINE [Concomitant]
     Dosage: 150 mg, each morning
  7. RANITIDINE [Concomitant]
     Dosage: 350 mg, each evening
  8. ASA [Concomitant]
     Dosage: 81 mg, qd

REACTIONS (2)
  - Pancreatitis [Unknown]
  - Leukocytosis [Unknown]
